FAERS Safety Report 6332330-0 (Version None)
Quarter: 2009Q3

REPORT INFORMATION
  Report Type: 
  Country: None (occurrence: None)
  Receive Date: 20090828
  Receipt Date: 20090824
  Transmission Date: 20100115
  Serious: Yes (Hospitalization)
  Sender: FDA-Public Use
  Company Number: CA-BRISTOL-MYERS SQUIBB COMPANY-14706170

PATIENT
  Age: 58 Year
  Sex: Male

DRUGS (13)
  1. ORENCIA [Suspect]
     Indication: RHEUMATOID ARTHRITIS
     Dosage: INFUSION: 9 LOT#8G36120X4 EXP DATE:MAR2010
     Route: 042
     Dates: start: 20080520, end: 20090428
  2. PREDNISONE TAB [Suspect]
  3. METHOTREXATE SODIUM [Concomitant]
     Route: 048
  4. NORVASC [Concomitant]
  5. DIOVAN [Concomitant]
     Dosage: 1 DF = 80(UNITS NOT SPECIFIED)
  6. FUROSEMIDE [Concomitant]
     Route: 048
  7. METOPROLOL [Concomitant]
     Dosage: 1 DF = 25(UNITS NOT SPECIFIED)
  8. FOLIC ACID [Concomitant]
  9. CALCITE [Concomitant]
  10. VITAR SODA [Concomitant]
  11. NEXIUM [Concomitant]
  12. CRESTOR [Concomitant]
  13. PLAVIX [Concomitant]

REACTIONS (1)
  - ATRIAL FIBRILLATION [None]
